FAERS Safety Report 9447684 (Version 2)
Quarter: 2013Q4

REPORT INFORMATION
  Report Type: Spontaneous
  Country: US (occurrence: US)
  Receive Date: 20130808
  Receipt Date: 20131112
  Transmission Date: 20140711
  Serious: Yes (Hospitalization)
  Sender: FDA-Public Use
  Company Number: US-BAYER-2013-094774

PATIENT
  Age: 31 Year
  Sex: Female

DRUGS (10)
  1. YAZ [Suspect]
     Indication: ENDOMETRIOSIS
  2. NITROFURANTOIN [Concomitant]
     Dosage: UNK
     Dates: start: 20110428
  3. ONDANSETRON [Concomitant]
     Dosage: UNK
     Dates: start: 20110428
  4. PHENAZOPYRIDINE [Concomitant]
     Dosage: UNK
     Dates: start: 20110520
  5. SOTALOL [Concomitant]
     Indication: PALPITATIONS
     Dosage: 80 MG, UNK
     Route: 048
  6. ALLEGRA [Concomitant]
     Dosage: 180 MG, DAILY
     Route: 048
  7. XOPENEX [Concomitant]
     Dosage: 45 ?G, UNK
  8. VERAPAMIL [Concomitant]
  9. MOTRIN [Concomitant]
  10. FENTANYL [Concomitant]

REACTIONS (3)
  - Deep vein thrombosis [Recovered/Resolved]
  - Pulmonary embolism [Recovered/Resolved]
  - Thrombophlebitis superficial [None]
